FAERS Safety Report 6479626-X (Version None)
Quarter: 2009Q4

REPORT INFORMATION
  Report Type: 
  Country: None (occurrence: None)
  Receive Date: 20091207
  Receipt Date: 20091207
  Transmission Date: 20100525
  Serious: No
  Sender: FDA-Public Use
  Company Number: None

PATIENT
  Age: 36 Year
  Sex: Female
  Weight: 56.4 kg

DRUGS (1)
  1. TRI-SPRINTEC [Suspect]
     Indication: DYSMENORRHOEA

REACTIONS (2)
  - MENSTRUATION IRREGULAR [None]
  - PRODUCT SUBSTITUTION ISSUE [None]
